FAERS Safety Report 25364349 (Version 7)
Quarter: 2025Q4

REPORT INFORMATION
  Report Type: Spontaneous
  Country: EU (occurrence: EU)
  Receive Date: 20250527
  Receipt Date: 20251009
  Transmission Date: 20260117
  Serious: Yes (Death, Life-Threatening, Hospitalization, Other)
  Sender: PFIZER
  Company Number: EU-BIOVITRUM-2025-BE-007070

PATIENT
  Age: 6 Year
  Sex: Male
  Weight: 20 kg

DRUGS (30)
  1. METHYLPREDNISOLONE SODIUM SUCCINATE [Suspect]
     Active Substance: METHYLPREDNISOLONE SODIUM SUCCINATE
     Indication: Haemophagocytic lymphohistiocytosis
     Dosage: 2 MG/KG, 1X/DAY
     Dates: start: 20250310
  2. METHYLPREDNISOLONE SODIUM SUCCINATE [Suspect]
     Active Substance: METHYLPREDNISOLONE SODIUM SUCCINATE
     Dosage: 10 MG/KG, 2X/DAY
     Route: 042
     Dates: start: 20250507, end: 20250511
  3. METHYLPREDNISOLONE SODIUM SUCCINATE [Suspect]
     Active Substance: METHYLPREDNISOLONE SODIUM SUCCINATE
     Dosage: 1 MG/KG, 2X/DAY
     Route: 042
     Dates: start: 20250512
  4. METHYLPREDNISOLONE SODIUM SUCCINATE [Suspect]
     Active Substance: METHYLPREDNISOLONE SODIUM SUCCINATE
     Dosage: 1.5 MG/KG
  5. ETOPOSIDE [Suspect]
     Active Substance: ETOPOSIDE
     Indication: Haemophagocytic lymphohistiocytosis
     Dosage: 150 MG/M2, 1X/DAY
     Route: 042
     Dates: start: 20250507, end: 20250507
  6. GAMIFANT [Suspect]
     Active Substance: EMAPALUMAB-LZSG
     Indication: Lysinuric protein intolerance
     Dosage: 3 MG/KG X 3 / WEEKS
     Route: 042
     Dates: start: 20250509
  7. GAMIFANT [Suspect]
     Active Substance: EMAPALUMAB-LZSG
     Indication: Haemophagocytic lymphohistiocytosis
     Dosage: 6 MG/KG (ON DAY1)
     Dates: start: 20250509
  8. GAMIFANT [Suspect]
     Active Substance: EMAPALUMAB-LZSG
     Dosage: 1 MG/KG
     Route: 042
     Dates: start: 20250520
  9. GAMIFANT [Suspect]
     Active Substance: EMAPALUMAB-LZSG
     Dosage: 3 MG/KG, (THE FOLLOWING DOSES WERE PROGRESSIVELY INCREASED UP TO 3 MG/KG)
     Route: 042
  10. GAMIFANT [Suspect]
     Active Substance: EMAPALUMAB-LZSG
     Dosage: 3 MG/KG (ON DAY 4)
     Route: 042
     Dates: start: 20250516
  11. GAMIFANT [Suspect]
     Active Substance: EMAPALUMAB-LZSG
     Dosage: 5 MG/KG, 2X/WEEK
     Route: 042
     Dates: start: 20250603
  12. GAMIFANT [Suspect]
     Active Substance: EMAPALUMAB-LZSG
     Dosage: 6 MG/KG, 2X/WEEK
     Route: 042
     Dates: start: 20250613
  13. KINERET [Suspect]
     Active Substance: ANAKINRA
     Indication: Lysinuric protein intolerance
     Dosage: 2 MG/KG, 1X/DAY, (SYRINGE)
     Route: 058
     Dates: start: 20250414, end: 20250516
  14. KINERET [Suspect]
     Active Substance: ANAKINRA
     Indication: Haemophagocytic lymphohistiocytosis
     Dosage: 4 MG/KG, 1X/DAY (INCREASED TO 4 MG/KG/DAY)
  15. KINERET [Suspect]
     Active Substance: ANAKINRA
     Dosage: UNK, ANAKINRA RESTARTED
  16. CYCLOSPORINE [Suspect]
     Active Substance: CYCLOSPORINE
     Indication: Haemophagocytic lymphohistiocytosis
     Dosage: UNK (TROUGH LEVELS BETWEEN 100 AND 150)
  17. CYCLOSPORINE [Suspect]
     Active Substance: CYCLOSPORINE
     Dosage: 1 MG/KG, 2X/DAY (TROUGH LEVELS BETWEEN 100 AND 150)
     Route: 048
     Dates: start: 202503
  18. LISINOPRIL [Concomitant]
     Active Substance: LISINOPRIL
     Indication: Prophylaxis
     Dosage: UNK
  19. LISINOPRIL [Concomitant]
     Active Substance: LISINOPRIL
     Indication: Fungal infection
  20. SPIRONOLACTONE [Concomitant]
     Active Substance: SPIRONOLACTONE
     Indication: Prophylaxis
     Dosage: UNK
  21. SPIRONOLACTONE [Concomitant]
     Active Substance: SPIRONOLACTONE
     Indication: Fungal infection
  22. DIAZEPAM [Concomitant]
     Active Substance: DIAZEPAM
     Dosage: UNK
  23. CHLORAL HYDRATE [Concomitant]
     Active Substance: CHLORAL HYDRATE
     Dosage: UNK
  24. ATENOLOL [Concomitant]
     Active Substance: ATENOLOL
     Indication: Prophylaxis
     Dosage: UNK
  25. ATENOLOL [Concomitant]
     Active Substance: ATENOLOL
     Indication: Fungal infection
  26. AMLODIPINE [Concomitant]
     Active Substance: AMLODIPINE BESYLATE
     Indication: Prophylaxis
     Dosage: UNK
  27. AMLODIPINE [Concomitant]
     Active Substance: AMLODIPINE BESYLATE
     Indication: Fungal infection
  28. CITRULLINE [Concomitant]
     Active Substance: CITRULLINE
     Indication: Metabolic disorder
     Dosage: UNK
  29. FUROSEMIDE [Concomitant]
     Active Substance: FUROSEMIDE
     Indication: Prophylaxis
     Dosage: UNK
  30. FUROSEMIDE [Concomitant]
     Active Substance: FUROSEMIDE
     Indication: Fungal infection

REACTIONS (14)
  - Haemophagocytic lymphohistiocytosis [Fatal]
  - Condition aggravated [Fatal]
  - Alveolar proteinosis [Fatal]
  - Enterobacter infection [Fatal]
  - Respiratory failure [Fatal]
  - Cytomegalovirus test positive [Fatal]
  - Colitis [Unknown]
  - Pneumonia cytomegaloviral [Unknown]
  - Pseudo Cushing^s syndrome [Unknown]
  - Myopathy [Unknown]
  - Escherichia sepsis [Recovered/Resolved]
  - Streptococcal sepsis [Unknown]
  - Platelet count decreased [Unknown]
  - Serum ferritin increased [Recovering/Resolving]

NARRATIVE: CASE EVENT DATE: 20250310
